FAERS Safety Report 10207242 (Version 1)
Quarter: 2014Q2

REPORT INFORMATION
  Report Type: Spontaneous
  Country: US (occurrence: US)
  Receive Date: 20140530
  Receipt Date: 20140530
  Transmission Date: 20141212
  Serious: No
  Sender: FDA-Public Use
  Company Number: US-GLAXOSMITHKLINE-A1025977A

PATIENT
  Age: 48 Year
  Sex: Male

DRUGS (2)
  1. VENTOLIN [Suspect]
     Indication: DYSPNOEA
     Route: 055
     Dates: start: 20130528
  2. NO CONCURRENT MEDICATION [Concomitant]

REACTIONS (3)
  - Drug ineffective [Recovered/Resolved]
  - Overdose [Unknown]
  - Product quality issue [Unknown]
